FAERS Safety Report 8230442-8 (Version None)
Quarter: 2012Q1

REPORT INFORMATION
  Report Type: 
  Country: None (occurrence: None)
  Receive Date: 20120323
  Receipt Date: 20120313
  Transmission Date: 20120608
  Serious: Yes (Other)
  Sender: FDA-Public Use
  Company Number: BR-BAYER-2011-106545

PATIENT
  Sex: Female

DRUGS (4)
  1. MEFENAMIC ACID [Concomitant]
     Indication: ENDOMETRIOSIS
  2. MIRENA [Suspect]
     Indication: MENORRHAGIA
     Dosage: 20 ?G, CONT
     Route: 015
     Dates: start: 20110721
  3. MIRENA [Suspect]
     Indication: ENDOMETRIOSIS
  4. MEFENAMIC ACID [Concomitant]
     Indication: MENORRHAGIA
     Dosage: 1 DF, TID
     Route: 048
     Dates: start: 20110801, end: 20110801

REACTIONS (10)
  - VERTIGO [None]
  - PROCEDURAL HYPERTENSION [None]
  - MALAISE [None]
  - LABYRINTHITIS [None]
  - DIZZINESS [None]
  - VISION BLURRED [None]
  - HEADACHE [None]
  - DEVICE DIFFICULT TO USE [None]
  - NAUSEA [None]
  - MUSCULAR WEAKNESS [None]
